FAERS Safety Report 7368600-7 (Version None)
Quarter: 2011Q1

REPORT INFORMATION
  Report Type: 
  Country: None (occurrence: None)
  Receive Date: 20110323
  Receipt Date: 20110322
  Transmission Date: 20110831
  Serious: Yes (Death)
  Sender: FDA-Public Use
  Company Number: JP-ABBOTT-11P-087-0709172-00

PATIENT
  Age: 90 Year
  Sex: Male

DRUGS (1)
  1. VASOMET [Suspect]
     Indication: PRODUCT USED FOR UNKNOWN INDICATION
     Dosage: 2 MG DAILY
     Route: 048

REACTIONS (2)
  - CEREBRAL INFARCTION [None]
  - WRONG DRUG ADMINISTERED [None]
